FAERS Safety Report 16583444 (Version 1)
Quarter: 2019Q3

REPORT INFORMATION
  Report Type: Spontaneous
  Country: US (occurrence: US)
  Receive Date: 20190716
  Receipt Date: 20190716
  Transmission Date: 20191004
  Serious: No
  Sender: FDA-Public Use
  Company Number: None

PATIENT
  Age: 37 Year
  Sex: Female
  Weight: 49.5 kg

DRUGS (1)
  1. CERAVE ITCH RELIEF MOISTURIZING [Suspect]
     Active Substance: PRAMOXINE HYDROCHLORIDE
     Indication: PRURITUS
     Dosage: ?          QUANTITY:0.10 OUNCE(S);?
     Route: 061
     Dates: start: 20190713, end: 20190714

REACTIONS (4)
  - Application site warmth [None]
  - Application site pain [None]
  - Application site rash [None]
  - Application site pruritus [None]

NARRATIVE: CASE EVENT DATE: 20190715
